FAERS Safety Report 7090448-1 (Version None)
Quarter: 2010Q4

REPORT INFORMATION
  Report Type: 
  Country: None (occurrence: None)
  Receive Date: 20101012
  Receipt Date: 20100908
  Transmission Date: 20110411
  Serious: No
  Sender: FDA-Public Use
  Company Number: US-001290

PATIENT
  Sex: Female
  Weight: 54.2 kg

DRUGS (3)
  1. KUVAN [Suspect]
     Indication: PHENYLKETONURIA
     Dosage: (100 MG QD ORAL)
     Route: 048
     Dates: start: 20100416
  2. AMINO ACIDS [Concomitant]
  3. RANITIDINE [Concomitant]

REACTIONS (1)
  - HEADACHE [None]
